FAERS Safety Report 4784815-6 (Version None)
Quarter: 2005Q3

REPORT INFORMATION
  Report Type: 
  Country: None (occurrence: None)
  Receive Date: 20050928
  Receipt Date: 20050908
  Transmission Date: 20060218
  Serious: Yes (Other)
  Sender: FDA-Public Use
  Company Number: USA0509107571

PATIENT
  Age: 59 Year
  Sex: Female

DRUGS (2)
  1. FORTEO [Suspect]
     Dates: start: 20040801
  2. TOPROL (METOPROLOL SUCCINATE) [Concomitant]

REACTIONS (4)
  - BLOOD CALCIUM INCREASED [None]
  - PERICARDIAL EFFUSION [None]
  - TINNITUS [None]
  - VITAMIN D DECREASED [None]
